FAERS Safety Report 25810009 (Version 1)
Quarter: 2025Q3

REPORT INFORMATION
  Report Type: Spontaneous
  Country: JP (occurrence: JP)
  Receive Date: 20250917
  Receipt Date: 20250917
  Transmission Date: 20251021
  Serious: Yes (Other)
  Sender: SANDOZ
  Company Number: JP-SANDOZ-SDZ2025JP066302

PATIENT
  Age: 15 Month
  Sex: Male

DRUGS (38)
  1. CARBOPLATIN [Suspect]
     Active Substance: CARBOPLATIN
     Indication: Retinoblastoma
     Route: 065
  2. CARBOPLATIN [Suspect]
     Active Substance: CARBOPLATIN
     Route: 065
  3. CISPLATIN [Suspect]
     Active Substance: CISPLATIN
     Route: 065
  4. CISPLATIN [Suspect]
     Active Substance: CISPLATIN
     Indication: Retinoblastoma
     Route: 065
  5. CISPLATIN [Suspect]
     Active Substance: CISPLATIN
     Route: 065
  6. CISPLATIN [Suspect]
     Active Substance: CISPLATIN
     Route: 065
  7. CYCLOPHOSPHAMIDE [Suspect]
     Active Substance: CYCLOPHOSPHAMIDE
     Indication: Retinoblastoma
     Route: 065
  8. CYCLOPHOSPHAMIDE [Suspect]
     Active Substance: CYCLOPHOSPHAMIDE
     Route: 065
  9. CYTARABINE [Suspect]
     Active Substance: CYTARABINE
     Indication: Retinoblastoma
     Route: 037
  10. CYTARABINE [Suspect]
     Active Substance: CYTARABINE
     Route: 037
  11. DECADRON (DEXAMETHASONE SODIUM PHOSPHATE) [Suspect]
     Active Substance: DEXAMETHASONE SODIUM PHOSPHATE
     Route: 037
  12. DECADRON (DEXAMETHASONE SODIUM PHOSPHATE) [Suspect]
     Active Substance: DEXAMETHASONE SODIUM PHOSPHATE
     Route: 037
  13. DECADRON (DEXAMETHASONE SODIUM PHOSPHATE) [Suspect]
     Active Substance: DEXAMETHASONE SODIUM PHOSPHATE
     Route: 037
  14. DECADRON (DEXAMETHASONE SODIUM PHOSPHATE) [Suspect]
     Active Substance: DEXAMETHASONE SODIUM PHOSPHATE
     Route: 037
  15. DECADRON (DEXAMETHASONE SODIUM PHOSPHATE) [Suspect]
     Active Substance: DEXAMETHASONE SODIUM PHOSPHATE
     Indication: Retinoblastoma
     Route: 037
  16. ETOPOSIDE [Suspect]
     Active Substance: ETOPOSIDE
     Route: 065
  17. ETOPOSIDE [Suspect]
     Active Substance: ETOPOSIDE
     Route: 065
  18. ETOPOSIDE [Suspect]
     Active Substance: ETOPOSIDE
     Route: 065
  19. ETOPOSIDE [Suspect]
     Active Substance: ETOPOSIDE
     Route: 065
  20. ETOPOSIDE [Suspect]
     Active Substance: ETOPOSIDE
     Indication: Retinoblastoma
     Route: 065
  21. HYDROCORTISONE SODIUM PHOSPHATE [Suspect]
     Active Substance: HYDROCORTISONE SODIUM PHOSPHATE
     Indication: Retinoblastoma
     Route: 037
  22. HYDROCORTISONE SODIUM PHOSPHATE [Suspect]
     Active Substance: HYDROCORTISONE SODIUM PHOSPHATE
     Route: 037
  23. IFOSFAMIDE [Suspect]
     Active Substance: IFOSFAMIDE
     Indication: Retinoblastoma
     Route: 065
  24. METHOTREXATE [Suspect]
     Active Substance: METHOTREXATE
     Route: 037
  25. METHOTREXATE [Suspect]
     Active Substance: METHOTREXATE
     Route: 037
  26. METHOTREXATE [Suspect]
     Active Substance: METHOTREXATE
     Route: 037
  27. METHOTREXATE [Suspect]
     Active Substance: METHOTREXATE
     Route: 037
  28. METHOTREXATE [Suspect]
     Active Substance: METHOTREXATE
     Route: 037
  29. METHOTREXATE [Suspect]
     Active Substance: METHOTREXATE
     Route: 037
  30. METHOTREXATE [Suspect]
     Active Substance: METHOTREXATE
     Indication: Retinoblastoma
     Route: 037
  31. TOPOTECAN HYDROCHLORIDE [Suspect]
     Active Substance: TOPOTECAN HYDROCHLORIDE
     Indication: Retinoblastoma
     Route: 065
  32. VINCRISTINE SULFATE [Suspect]
     Active Substance: VINCRISTINE SULFATE
     Route: 065
  33. VINCRISTINE SULFATE [Suspect]
     Active Substance: VINCRISTINE SULFATE
     Route: 065
  34. VINCRISTINE SULFATE [Suspect]
     Active Substance: VINCRISTINE SULFATE
     Indication: Retinoblastoma
     Route: 065
  35. VINCRISTINE SULFATE [Suspect]
     Active Substance: VINCRISTINE SULFATE
     Route: 065
  36. VINCRISTINE SULFATE [Suspect]
     Active Substance: VINCRISTINE SULFATE
     Route: 065
  37. VINCRISTINE SULFATE [Suspect]
     Active Substance: VINCRISTINE SULFATE
     Route: 065
  38. VINCRISTINE SULFATE [Suspect]
     Active Substance: VINCRISTINE SULFATE
     Route: 065

REACTIONS (2)
  - Cerebral infarction [Unknown]
  - Cerebral haemorrhage [Unknown]
